FAERS Safety Report 4448608-1 (Version None)
Quarter: 2004Q3

REPORT INFORMATION
  Report Type: 
  Country: None (occurrence: None)
  Receive Date: 20040909
  Receipt Date: 20040820
  Transmission Date: 20050211
  Serious: Yes (Hospitalization)
  Sender: FDA-Public Use
  Company Number: MEDI-0002164

PATIENT
  Age: 3 Month
  Sex: Male
  Weight: 3.8 kg

DRUGS (8)
  1. SYNAGIS [Suspect]
     Indication: ANTIVIRAL PROPHYLAXIS
     Dosage: 55 + 32 + 54 + 70 + 80 + 90 MG, 1 IN 30 D, INTRAMUSCULAR
     Route: 030
     Dates: start: 20031024, end: 20031215
  2. SYNAGIS [Suspect]
     Indication: ANTIVIRAL PROPHYLAXIS
     Dosage: 55 + 32 + 54 + 70 + 80 + 90 MG, 1 IN 30 D, INTRAMUSCULAR
     Route: 030
     Dates: start: 20031024
  3. SYNAGIS [Suspect]
     Indication: ANTIVIRAL PROPHYLAXIS
     Dosage: 55 + 32 + 54 + 70 + 80 + 90 MG, 1 IN 30 D, INTRAMUSCULAR
     Route: 030
     Dates: start: 20031117
  4. SYNAGIS [Suspect]
     Indication: ANTIVIRAL PROPHYLAXIS
     Dosage: 55 + 32 + 54 + 70 + 80 + 90 MG, 1 IN 30 D, INTRAMUSCULAR
     Route: 030
     Dates: start: 20040119
  5. SYNAGIS [Suspect]
     Indication: ANTIVIRAL PROPHYLAXIS
     Dosage: 55 + 32 + 54 + 70 + 80 + 90 MG, 1 IN 30 D, INTRAMUSCULAR
     Route: 030
     Dates: start: 20040220
  6. SYNAGIS [Suspect]
     Indication: ANTIVIRAL PROPHYLAXIS
     Dosage: 55 + 32 + 54 + 70 + 80 + 90 MG, 1 IN 30 D, INTRAMUSCULAR
     Route: 030
     Dates: start: 20040319
  7. FERRIC PYROPHOSPHATE (FERRIC PYROPHOSPHATE) [Concomitant]
  8. ALFACALCIDOL(ALFA-CALCIDOL) [Concomitant]

REACTIONS (7)
  - BRONCHITIS VIRAL [None]
  - FEEDING DISORDER OF INFANCY OR EARLY CHILDHOOD [None]
  - POOR SUCKING REFLEX [None]
  - PROTEIN URINE PRESENT [None]
  - RHINORRHOEA [None]
  - SNEEZING [None]
  - URINE KETONE BODY PRESENT [None]
